FAERS Safety Report 11230456 (Version 1)
Quarter: 2015Q3

REPORT INFORMATION
  Report Type: Other
  Country: BE (occurrence: BE)
  Receive Date: 20150701
  Receipt Date: 20150701
  Transmission Date: 20151125
  Serious: Yes (Hospitalization)
  Sender: FDA-Public Use
  Company Number: BE-LUPIN PHARMACEUTICALS INC.-2015-01898

PATIENT
  Age: 39 Year
  Sex: Male

DRUGS (4)
  1. RISPERIDONE. [Suspect]
     Active Substance: RISPERIDONE
     Indication: BIPOLAR I DISORDER
     Dosage: 6MG
     Route: 065
  2. QUETIAPINE [Suspect]
     Active Substance: QUETIAPINE
     Indication: PRODUCT USED FOR UNKNOWN INDICATION
     Route: 065
  3. ZUCLOPENTHIXOL [Suspect]
     Active Substance: ZUCLOPENTHIXOL
     Indication: PRODUCT USED FOR UNKNOWN INDICATION
     Route: 030
  4. CLOTIAPINE [Suspect]
     Active Substance: CLOTHIAPINE
     Indication: BIPOLAR I DISORDER
     Route: 065

REACTIONS (1)
  - Pulmonary embolism [Recovering/Resolving]
